FAERS Safety Report 15277670 (Version 3)
Quarter: 2018Q3

REPORT INFORMATION
  Report Type: Spontaneous
  Country: US (occurrence: US)
  Receive Date: 20180814
  Receipt Date: 20180921
  Transmission Date: 20181010
  Serious: Yes (Hospitalization)
  Sender: FDA-Public Use
  Company Number: US-IMPAX LABORATORIES, INC-2018-IPXL-02638

PATIENT
  Age: 86 Year
  Sex: Male

DRUGS (9)
  1. RYTARY [Suspect]
     Active Substance: CARBIDOPA\LEVODOPA
     Indication: PARKINSON^S DISEASE
     Dosage: 23.75MG/95MG, 1 CAP THREE TIMES DAILY
     Route: 065
     Dates: start: 201804, end: 2018
  2. FUROSEMIDE. [Concomitant]
     Active Substance: FUROSEMIDE
     Indication: PRODUCT USED FOR UNKNOWN INDICATION
     Dosage: 1 DF, EVERY OTHER DAY
     Route: 065
     Dates: start: 201805
  3. RYTARY [Suspect]
     Active Substance: CARBIDOPA\LEVODOPA
     Dosage: 48.75/195MG, 1 CAPSULE, FOUR TIME DAILY
     Route: 065
     Dates: start: 2018, end: 201805
  4. BABY ASPIRIN [Concomitant]
     Active Substance: ASPIRIN
     Indication: CARDIAC DISORDER
     Dosage: UNK, 1 /DAY
     Route: 065
  5. RYTARY [Suspect]
     Active Substance: CARBIDOPA\LEVODOPA
     Dosage: 48.75/195MG, 1 CAPSULE, FOUR TIME DAILY
     Route: 065
     Dates: start: 201805, end: 2018
  6. FINASTERIDE. [Concomitant]
     Active Substance: FINASTERIDE
     Indication: PROSTATIC DISORDER
     Dosage: UNK, 1 /DAY
     Route: 065
  7. RYTARY [Suspect]
     Active Substance: CARBIDOPA\LEVODOPA
     Dosage: UNK; DOSE INCREASE
     Route: 065
     Dates: start: 2018
  8. WARFARIN [Concomitant]
     Active Substance: WARFARIN
     Indication: ANTICOAGULANT THERAPY
     Dosage: 5 MG, 1 /DAY
     Route: 048
  9. TERAZOSIN [Concomitant]
     Active Substance: TERAZOSIN\TERAZOSIN HYDROCHLORIDE
     Indication: PROSTATIC DISORDER
     Dosage: 5 MG, 1 IN EVERY 12HR
     Route: 065

REACTIONS (4)
  - Hallucination [Recovering/Resolving]
  - Gallbladder operation [Unknown]
  - Therapeutic response unexpected [Unknown]
  - Therapy cessation [Unknown]

NARRATIVE: CASE EVENT DATE: 2018
